FAERS Safety Report 7285315-4 (Version None)
Quarter: 2011Q1

REPORT INFORMATION
  Report Type: 
  Country: None (occurrence: None)
  Receive Date: 20110210
  Receipt Date: 20110204
  Transmission Date: 20110831
  Serious: Yes (Hospitalization)
  Sender: FDA-Public Use
  Company Number: US-ROCHE-752274

PATIENT
  Sex: Female
  Weight: 70.8 kg

DRUGS (5)
  1. HYDROCHLOROTHIAZIDE [Concomitant]
  2. GLUCOSAMINE/SELENIUM [Concomitant]
  3. EVISTA [Concomitant]
  4. ATIVAN [Concomitant]
  5. CAPECITABINE [Suspect]
     Dosage: DOSE: 2500 MG IN THE MORNING AND 2000 MG IN THE EVENING
     Route: 048
     Dates: start: 20101211, end: 20101219

REACTIONS (8)
  - DEHYDRATION [None]
  - PROCTALGIA [None]
  - STOMATITIS [None]
  - PYREXIA [None]
  - DIARRHOEA [None]
  - VISION BLURRED [None]
  - FATIGUE [None]
  - LOSS OF CONSCIOUSNESS [None]
